FAERS Safety Report 9285256 (Version 1)
Quarter: 2013Q2

REPORT INFORMATION
  Report Type: Spontaneous
  Country: US (occurrence: US)
  Receive Date: 20130513
  Receipt Date: 20130513
  Transmission Date: 20140414
  Serious: Yes (Other)
  Sender: FDA-Public Use
  Company Number: US-SUN PHARMACEUTICAL INDUSTRIES LTD-2013SUN00575

PATIENT
  Age: 43 Year
  Sex: Female

DRUGS (2)
  1. LITHIUM CARBONATE TABLETS, USP 300MG [Suspect]
     Indication: BIPOLAR DISORDER
     Route: 065
  2. VITAMIN D [Interacting]
     Indication: PRODUCT USED FOR UNKNOWN INDICATION
     Dosage: 8000 IU, DAILY

REACTIONS (7)
  - Potentiating drug interaction [Recovering/Resolving]
  - Toxicity to various agents [Recovering/Resolving]
  - Hypercalcaemia [Recovering/Resolving]
  - Hallucination, visual [Recovering/Resolving]
  - Mental status changes [Recovering/Resolving]
  - Blood parathyroid hormone decreased [None]
  - Antipsychotic drug level increased [None]
